FAERS Safety Report 6741443-0 (Version None)
Quarter: 2010Q2

REPORT INFORMATION
  Report Type: 
  Country: None (occurrence: None)
  Receive Date: 20100526
  Receipt Date: 20100316
  Transmission Date: 20101027
  Serious: Yes (Other)
  Sender: FDA-Public Use
  Company Number: US-BAYER-201015436NA

PATIENT
  Age: 33 Year
  Sex: Female
  Weight: 87 kg

DRUGS (17)
  1. MAGNEVIST [Suspect]
     Indication: ANGIOGRAM
     Dates: start: 20041126, end: 20041126
  2. OMNISCAN [Suspect]
     Indication: NUCLEAR MAGNETIC RESONANCE IMAGING
  3. OPTIMARK [Suspect]
     Indication: NUCLEAR MAGNETIC RESONANCE IMAGING
  4. PROHANCE [Suspect]
     Indication: ANGIOGRAM
     Dosage: TOTAL DAILY DOSE: 20 ML
     Route: 042
     Dates: start: 20061003, end: 20061003
  5. PROHANCE [Suspect]
     Dosage: TOTAL DAILY DOSE: 40 ML
     Dates: start: 20060706, end: 20060706
  6. PROHANCE [Suspect]
     Dosage: TOTAL DAILY DOSE: 20 ML
     Route: 042
     Dates: start: 20061207, end: 20061207
  7. MULTIHANCE [Suspect]
     Indication: NUCLEAR MAGNETIC RESONANCE IMAGING
  8. GABITRIL [Concomitant]
  9. RENAGEL [Concomitant]
     Dosage: AS USED: 800 MG  UNIT DOSE: 800 MG
  10. NEURONTIN [Concomitant]
  11. RENAPHRO [Concomitant]
  12. ZOLOFT [Concomitant]
  13. PLAVIX [Concomitant]
  14. OXYCODONE [Concomitant]
  15. PREVACID [Concomitant]
  16. MIDODRINE HYDROCHLORIDE [Concomitant]
  17. LYRICA [Concomitant]

REACTIONS (21)
  - ERYTHEMA [None]
  - FIBROSIS [None]
  - GENERAL PHYSICAL HEALTH DETERIORATION [None]
  - JOINT CONTRACTURE [None]
  - JOINT LOCK [None]
  - JOINT RANGE OF MOTION DECREASED [None]
  - JOINT STIFFNESS [None]
  - MUSCLE CONTRACTURE [None]
  - MUSCULOSKELETAL STIFFNESS [None]
  - MYALGIA [None]
  - NEPHROGENIC SYSTEMIC FIBROSIS [None]
  - OEDEMA PERIPHERAL [None]
  - PAIN [None]
  - PAIN OF SKIN [None]
  - SCAR [None]
  - SKIN DISCOLOURATION [None]
  - SKIN EXFOLIATION [None]
  - SKIN HYPERPIGMENTATION [None]
  - SKIN INDURATION [None]
  - SKIN PLAQUE [None]
  - SKIN TIGHTNESS [None]
